FAERS Safety Report 5530086-2 (Version None)
Quarter: 2007Q4

REPORT INFORMATION
  Report Type: 
  Country: None (occurrence: None)
  Receive Date: 20071119
  Receipt Date: 20070801
  Transmission Date: 20080405
  Serious: No
  Sender: FDA-Public Use
  Company Number: TPA2007A01631

PATIENT
  Age: 45 Year
  Sex: Female
  Weight: 61.2356 kg

DRUGS (4)
  1. ROZEREM [Suspect]
     Indication: INSOMNIA
     Dosage: 8 MG, QHS, PER ORAL
     Route: 048
     Dates: start: 20070720
  2. AMBIEN CR [Suspect]
     Indication: INSOMNIA
     Dates: end: 20070720
  3. BENADRYL (DIPHENHYDRAMINE) (TABLETS) [Concomitant]
  4. PROVIGIL [Concomitant]

REACTIONS (1)
  - INITIAL INSOMNIA [None]
